FAERS Safety Report 5917412-7 (Version None)
Quarter: 2008Q4

REPORT INFORMATION
  Report Type: 
  Country: None (occurrence: None)
  Receive Date: 20081014
  Receipt Date: 20081006
  Transmission Date: 20090506
  Serious: Yes (Death)
  Sender: FDA-Public Use
  Company Number: B0537985A

PATIENT
  Age: 84 Year
  Sex: Male
  Weight: 4.5 kg

DRUGS (1)
  1. SEROXAT [Suspect]
     Dosage: 30MG WEEKLY

REACTIONS (2)
  - DEPRESSION [None]
  - LUNG ADENOCARCINOMA [None]
